FAERS Safety Report 6658411-X (Version None)
Quarter: 2010Q1

REPORT INFORMATION
  Report Type: 
  Country: None (occurrence: None)
  Receive Date: 20100330
  Receipt Date: 20100322
  Transmission Date: 20100710
  Serious: Yes (Hospitalization)
  Sender: FDA-Public Use
  Company Number: US-BAYER-201016965NA

PATIENT
  Age: 47 Year
  Sex: Female

DRUGS (3)
  1. BETASERON [Suspect]
     Indication: MULTIPLE SCLEROSIS
     Route: 058
     Dates: end: 20090101
  2. TYSABRI [Concomitant]
     Route: 065
  3. STEROIDS [Concomitant]
     Route: 065
     Dates: start: 20090601, end: 20090601

REACTIONS (2)
  - HOSPITALISATION [None]
  - MULTIPLE SCLEROSIS [None]
